FAERS Safety Report 5971009-1 (Version None)
Quarter: 2008Q4

REPORT INFORMATION
  Report Type: 
  Country: None (occurrence: None)
  Receive Date: 20081128
  Receipt Date: 20081120
  Transmission Date: 20090506
  Serious: Yes (Hospitalization)
  Sender: FDA-Public Use
  Company Number: FR-SP-2008-03778

PATIENT
  Age: 78 Year
  Sex: Male

DRUGS (1)
  1. IMMUCYST [Suspect]
     Indication: BLADDER CANCER
     Dosage: 1/2 DOSE
     Route: 043
     Dates: start: 20081107

REACTIONS (4)
  - BOVINE TUBERCULOSIS [None]
  - DYSPNOEA [None]
  - PYREXIA [None]
  - URINARY RETENTION [None]
